FAERS Safety Report 7141281-3 (Version None)
Quarter: 2010Q4

REPORT INFORMATION
  Report Type: 
  Country: None (occurrence: None)
  Receive Date: 20101122
  Receipt Date: 20101112
  Transmission Date: 20110411
  Serious: Yes (Other)
  Sender: FDA-Public Use
  Company Number: 021953

PATIENT
  Age: 69 Year
  Sex: Male

DRUGS (12)
  1. ISOSORBIDE MONONITRATE [Suspect]
     Dosage: (30 MG BID)
  2. ATENOLOL [Suspect]
     Dosage: (25 MG QD)
  3. CANDESARTAN CILEXETIL [Suspect]
     Dosage: (8 MG QD)
  4. FLURBIPROFEN [Suspect]
     Dosage: (50 MG BID)
  5. FOLIC ACID [Suspect]
     Dosage: (15 MG 1X/WEEK)
  6. LANSOPRAZOLE [Suspect]
     Dosage: (30 MG QD)
  7. METHOTREXATE [Suspect]
     Dosage: (17.5 MG 1X/WEEK)
  8. NICORANDIL (NICORANDIL) [Suspect]
     Dosage: (10 MG BID)
  9. PRAVASTATIN [Suspect]
     Dosage: (20 MG QD)
  10. SIMVASTATIN [Suspect]
  11. ASPIRIN [Concomitant]
  12. CALCIPOTRIOL [Concomitant]

REACTIONS (1)
  - ABNORMAL DREAMS [None]
